FAERS Safety Report 11338646 (Version 1)
Quarter: 2015Q3

REPORT INFORMATION
  Report Type: Spontaneous
  Country: US (occurrence: US)
  Receive Date: 20150803
  Receipt Date: 20150803
  Transmission Date: 20151125
  Serious: Yes (Other)
  Sender: FDA-Public Use
  Company Number: US-ELI_LILLY_AND_COMPANY-US200801003091

PATIENT
  Age: 7 Year
  Sex: Male

DRUGS (1)
  1. STRATTERA [Suspect]
     Active Substance: ATOMOXETINE HYDROCHLORIDE
     Indication: ATTENTION DEFICIT/HYPERACTIVITY DISORDER
     Dosage: 10 MG, 3/D
     Route: 048
     Dates: start: 200708, end: 20080108

REACTIONS (4)
  - Aggression [Unknown]
  - Screaming [Unknown]
  - Intentional self-injury [Unknown]
  - Suicidal ideation [Unknown]

NARRATIVE: CASE EVENT DATE: 200712
